FAERS Safety Report 5287862-3 (Version None)
Quarter: 2007Q2

REPORT INFORMATION
  Report Type: 
  Country: None (occurrence: None)
  Receive Date: 20070403
  Receipt Date: 20070403
  Transmission Date: 20071010
  Serious: Yes (Other)
  Sender: FDA-Public Use
  Company Number: None

PATIENT
  Sex: Female
  Weight: 102.014 kg

DRUGS (2)
  1. CITALOPRAM HYDROBROMIDE [Suspect]
     Indication: DEPRESSION
     Dosage: ONCE PO QDAY
     Route: 048
     Dates: start: 20070124, end: 20070301
  2. CITALOPRAM HYDROBROMIDE [Suspect]
     Indication: GENERALISED ANXIETY DISORDER
     Dosage: ONCE PO QDAY
     Route: 048
     Dates: start: 20070124, end: 20070301

REACTIONS (4)
  - ANXIETY [None]
  - CONDITION AGGRAVATED [None]
  - DEPRESSION [None]
  - THERAPEUTIC RESPONSE UNEXPECTED WITH DRUG SUBSTITUTION [None]
